FAERS Safety Report 11399445 (Version 1)
Quarter: 2015Q3

REPORT INFORMATION
  Report Type: Spontaneous
  Country: US (occurrence: US)
  Receive Date: 20150820
  Receipt Date: 20150820
  Transmission Date: 20151125
  Serious: No
  Sender: FDA-Public Use
  Company Number: US-SUPERNUS PHARMACEUTICALS, INC.-2015SUP00060

PATIENT
  Sex: Female

DRUGS (2)
  1. OXTELLAR XR [Suspect]
     Active Substance: OXCARBAZEPINE
  2. KEPPRA [Suspect]
     Active Substance: LEVETIRACETAM

REACTIONS (2)
  - Gingival bleeding [Unknown]
  - Gingival swelling [Unknown]
